FAERS Safety Report 18668522 (Version 1)
Quarter: 2020Q4

REPORT INFORMATION
  Report Type: Spontaneous
  Country: US (occurrence: US)
  Receive Date: 20201228
  Receipt Date: 20201228
  Transmission Date: 20210114
  Serious: Yes (Life-Threatening, Hospitalization, Other)
  Sender: FDA-Public Use
  Company Number: US-DRREDDYS-USA/USA/20/0130486

PATIENT
  Age: 72 Year
  Sex: Female

DRUGS (2)
  1. DILTIAZEM HYDROCHLORIDE. [Concomitant]
     Active Substance: DILTIAZEM HYDROCHLORIDE
     Indication: ATRIAL FIBRILLATION
     Dosage: DRIPS
  2. HEPARIN SODIUM. [Suspect]
     Active Substance: HEPARIN SODIUM
     Indication: ATRIAL FIBRILLATION
     Route: 041

REACTIONS (3)
  - Hypotension [Recovered/Resolved]
  - Haemoglobin decreased [Recovering/Resolving]
  - Retroperitoneal haematoma [Recovered/Resolved]
